FAERS Safety Report 17426992 (Version 11)
Quarter: 2022Q1

REPORT INFORMATION
  Report Type: Report from Study
  Country: US (occurrence: US)
  Receive Date: 20200217
  Receipt Date: 20220321
  Transmission Date: 20220424
  Serious: Yes (Other)
  Sender: FDA-Public Use
  Company Number: US-NOVARTISPH-NVSC2020US043560

PATIENT
  Age: 51 Year
  Sex: Male

DRUGS (2)
  1. GILENYA [Suspect]
     Active Substance: FINGOLIMOD HYDROCHLORIDE
     Indication: Multiple sclerosis
     Dosage: 0.5 MG, QD
     Route: 048
     Dates: start: 20200213
  2. GILENYA [Suspect]
     Active Substance: FINGOLIMOD HYDROCHLORIDE
     Indication: Relapsing-remitting multiple sclerosis
     Dosage: 0.5 MG, QD
     Route: 048
     Dates: start: 202002

REACTIONS (8)
  - Transient ischaemic attack [Unknown]
  - Memory impairment [Unknown]
  - Diplopia [Not Recovered/Not Resolved]
  - Visual field defect [Unknown]
  - Hot flush [Unknown]
  - Muscular weakness [Unknown]
  - Depression [Unknown]
  - Dizziness [Unknown]

NARRATIVE: CASE EVENT DATE: 20200520
